FAERS Safety Report 8417041-X (Version None)
Quarter: 2012Q2

REPORT INFORMATION
  Report Type: 
  Country: None (occurrence: None)
  Receive Date: 20120606
  Receipt Date: 20120530
  Transmission Date: 20120825
  Serious: Yes (Hospitalization)
  Sender: FDA-Public Use
  Company Number: FR-PFIZER INC-2012129491

PATIENT
  Age: 58 Year
  Sex: Male

DRUGS (12)
  1. PREDNISONE TAB [Concomitant]
     Dosage: 40 MG
     Dates: start: 20090920
  2. VFEND [Suspect]
     Dosage: 200 MG, 2X/DAY
     Route: 048
     Dates: start: 20100127, end: 20100204
  3. BISOPROLOL FUMARATE [Concomitant]
     Dosage: 1.25 MG DAILY
  4. VFEND [Suspect]
     Dosage: 400 MG, 2X/DAY
     Route: 048
     Dates: start: 20100126, end: 20100126
  5. ACETAMINOPHEN AND CODEINE PHOSPHATE [Concomitant]
     Dosage: 6 DF DAILY
     Route: 048
     Dates: start: 20100126, end: 20100207
  6. ATACAND [Concomitant]
     Dosage: 4 MG DAILY
  7. FOLIC ACID [Concomitant]
     Dosage: 5 MG DAILY
  8. CALCIUM D3 ^STADA^ [Concomitant]
     Dosage: 2 DF DAILY
  9. NEXIUM [Concomitant]
     Dosage: 20 MG DAILY
  10. DESLORATADINE [Concomitant]
     Dosage: 5 MG DAILY
  11. LASIX [Concomitant]
  12. PREDNISONE TAB [Concomitant]
     Dosage: UNK
     Route: 048
     Dates: start: 20081101

REACTIONS (1)
  - HEPATITIS CHOLESTATIC [None]
